FAERS Safety Report 8743268 (Version 3)
Quarter: 2012Q4

REPORT INFORMATION
  Report Type: 
  Country: US (occurrence: US)
  Receive Date: 20120824
  Receipt Date: 20121003
  Transmission Date: 20130627
  Serious: No
  Sender: FDA-Public Use
  Company Number: US-PFIZER INC-2012204997

PATIENT
  Age: 44 Year
  Sex: Female
  Weight: 90.7 kg

DRUGS (3)
  1. NEURONTIN [Suspect]
     Indication: BACK PAIN
     Dosage: 300 mg, 2x/day
     Route: 048
  2. EFFEXOR [Suspect]
     Indication: DEPRESSION
     Dosage: 75 mg, 1x/day
     Route: 048
  3. PREMARIN [Suspect]
     Indication: HYSTERECTOMY
     Dosage: 0.625 mg, 1x/day
     Route: 048

REACTIONS (1)
  - Oropharyngeal pain [Unknown]
